FAERS Safety Report 6422808-3 (Version None)
Quarter: 2009Q4

REPORT INFORMATION
  Report Type: 
  Country: None (occurrence: None)
  Receive Date: 20091102
  Receipt Date: 20091002
  Transmission Date: 20100525
  Serious: No
  Sender: FDA-Public Use
  Company Number: US-BAYER-200915265BCC

PATIENT
  Age: 61 Year
  Sex: Female
  Weight: 47 kg

DRUGS (2)
  1. ALEVE (CAPLET) [Suspect]
     Indication: MUSCULOSKELETAL CHEST PAIN
     Dosage: TOTAL DAILY DOSE: 440 MG  UNIT DOSE: 220 MG
     Route: 048
     Dates: start: 20091001
  2. IBUPROFEN [Concomitant]
     Indication: OSTEOARTHRITIS
     Route: 065

REACTIONS (2)
  - ABDOMINAL PAIN UPPER [None]
  - MUSCULOSKELETAL CHEST PAIN [None]
